FAERS Safety Report 15519716 (Version 1)
Quarter: 2018Q4

REPORT INFORMATION
  Report Type: Spontaneous
  Country: FR (occurrence: FR)
  Receive Date: 20181017
  Receipt Date: 20181017
  Transmission Date: 20190205
  Serious: Yes (Other)
  Sender: FDA-Public Use
  Company Number: FR-ALLERGAN-1849420US

PATIENT
  Sex: Female

DRUGS (3)
  1. ATROPINE SULFATE 1.0% SOL (0015B) [Suspect]
     Active Substance: ATROPINE SULFATE
     Indication: MYDRIASIS
     Dosage: 1 GTT, TID
     Route: 047
     Dates: start: 201709, end: 201709
  2. CHIBRO CADRON, COLLYRE EN FLACON [Concomitant]
     Indication: PRODUCT USED FOR UNKNOWN INDICATION
     Route: 065
  3. ATROPINE SULFATE 1.0% SOL (0015B) [Suspect]
     Active Substance: ATROPINE SULFATE
     Dosage: 1 GTT, TID
     Route: 047
     Dates: start: 201707, end: 201707

REACTIONS (4)
  - Retinal detachment [Recovered/Resolved]
  - Retinal detachment [Recovered/Resolved with Sequelae]
  - Visual impairment [Recovered/Resolved]
  - Visual impairment [Recovered/Resolved]

NARRATIVE: CASE EVENT DATE: 201707
